FAERS Safety Report 4711185-1 (Version None)
Quarter: 2005Q3

REPORT INFORMATION
  Report Type: 
  Country: None (occurrence: None)
  Receive Date: 20050711
  Receipt Date: 20050629
  Transmission Date: 20060218
  Serious: Yes (Other)
  Sender: FDA-Public Use
  Company Number: 200516054GDDC

PATIENT
  Age: 76 Year
  Sex: Female
  Weight: 84.5 kg

DRUGS (1)
  1. DOCETAXEL [Suspect]
     Indication: BREAST CANCER
     Route: 042
     Dates: start: 20050315, end: 20050520

REACTIONS (1)
  - HYPERGLYCAEMIA [None]
